FAERS Safety Report 9149115 (Version 1)
Quarter: 2013Q1

REPORT INFORMATION
  Report Type: Spontaneous
  Country: US (occurrence: US)
  Receive Date: 20130308
  Receipt Date: 20130308
  Transmission Date: 20140127
  Serious: Yes (Other)
  Sender: FDA-Public Use
  Company Number: US-PFIZER INC-2013077685

PATIENT
  Age: 58 Year
  Sex: Male

DRUGS (2)
  1. ZOLOFT [Suspect]
     Dosage: 100 MG, 2X/DAY
  2. ABILIFY [Suspect]
     Dosage: 15 MG, UNK

REACTIONS (3)
  - Hearing impaired [Unknown]
  - Activities of daily living impaired [Unknown]
  - Drug hypersensitivity [Unknown]
